FAERS Safety Report 21039087 (Version 4)
Quarter: 2022Q4

REPORT INFORMATION
  Report Type: Spontaneous
  Country: DE (occurrence: DE)
  Receive Date: 20220704
  Receipt Date: 20221007
  Transmission Date: 20230113
  Serious: Yes (Other)
  Sender: FDA-Public Use
  Company Number: DE-ROCHE-3100843

PATIENT
  Age: 21 Year
  Sex: Female

DRUGS (4)
  1. VELCADE [Suspect]
     Active Substance: BORTEZOMIB
     Indication: Ovarian germ cell teratoma
     Dosage: 1.3 MILLIGRAM/SQ. METER
     Route: 065
  2. RITUXIMAB [Suspect]
     Active Substance: RITUXIMAB
     Indication: Ovarian germ cell teratoma benign
     Dosage: UNK
     Route: 065
  3. METHYLPREDNISOLONE [Suspect]
     Active Substance: METHYLPREDNISOLONE
     Indication: Ovarian germ cell teratoma benign
     Dosage: 500 MILLIGRAM, QD
     Route: 042
  4. PREDNISOLONE [Suspect]
     Active Substance: PREDNISOLONE
     Indication: Ovarian germ cell teratoma benign
     Dosage: 1 MILLIGRAM/KILOGRAM, QD
     Route: 048

REACTIONS (3)
  - Septic shock [Unknown]
  - Drug ineffective for unapproved indication [Unknown]
  - Off label use [Unknown]
